FAERS Safety Report 8177242 (Version 4)
Quarter: 2013Q2

REPORT INFORMATION
  Report Type: Spontaneous
  Country: GB (occurrence: GB)
  Receive Date: 20111012
  Receipt Date: 20130529
  Transmission Date: 20140414
  Serious: Yes (Other)
  Sender: FDA-Public Use
  Company Number: GB-UCBSA-027979

PATIENT
  Age: 29 Year
  Sex: Female
  Weight: 64 kg

DRUGS (5)
  1. CO-CODAMOL [Suspect]
     Indication: PAIN
     Dosage: 30/500 2 TABLETS
     Dates: start: 20090106
  2. FOLIC ACID [Suspect]
     Indication: PREGNANCY
     Dates: start: 200905
  3. OMEPRAZOLE [Suspect]
     Indication: PROPHYLAXIS AGAINST GASTROINTESTINAL ULCER
     Dosage: DAILY
     Dates: start: 20081016
  4. HYDROXOCOBALAMIN [Suspect]
     Indication: VITAMIN B12 DEFICIENCY
     Dates: start: 20091216
  5. LYRICA [Suspect]
     Indication: PAIN
     Dates: start: 20080815

REACTIONS (5)
  - Haemorrhage in pregnancy [Unknown]
  - Infection [Unknown]
  - Pelvic pain [Unknown]
  - Forceps delivery [Recovered/Resolved]
  - Pregnancy [Recovered/Resolved]
